FAERS Safety Report 11721816 (Version 1)
Quarter: 2015Q4

REPORT INFORMATION
  Report Type: Spontaneous
  Country: US (occurrence: US)
  Receive Date: 20151111
  Receipt Date: 20151111
  Transmission Date: 20160304
  Serious: Yes (Other)
  Sender: FDA-Public Use
  Company Number: US-JNJFOC-20151004109

PATIENT
  Age: 28 Year
  Sex: Female

DRUGS (1)
  1. XARELTO [Suspect]
     Active Substance: RIVAROXABAN
     Indication: PRODUCT USED FOR UNKNOWN INDICATION
     Route: 048

REACTIONS (11)
  - Menorrhagia [Unknown]
  - Coagulation test abnormal [Unknown]
  - Increased tendency to bruise [Unknown]
  - Coagulation factor VIII level decreased [Unknown]
  - Coagulation factor IX level decreased [Unknown]
  - International normalised ratio abnormal [Unknown]
  - Coagulation factor X level decreased [Unknown]
  - Prothrombin time prolonged [Unknown]
  - Coagulation factor V level decreased [Unknown]
  - Epistaxis [Unknown]
  - Activated partial thromboplastin time prolonged [Unknown]
